FAERS Safety Report 24247515 (Version 2)
Quarter: 2024Q4

REPORT INFORMATION
  Report Type: Report from Study
  Country: US (occurrence: US)
  Receive Date: 20240826
  Receipt Date: 20241008
  Transmission Date: 20250115
  Serious: Yes (Hospitalization)
  Sender: ACADIA PHARMACEUTICALS
  Company Number: US-ACADIA PHARMACEUTICALS INC.-ACA-2024-PIM-004208

PATIENT
  Age: 83 Year
  Sex: Female

DRUGS (35)
  1. NUPLAZID [Suspect]
     Active Substance: PIMAVANSERIN TARTRATE
     Indication: Parkinson^s disease psychosis
     Dosage: 34 MILLIGRAM, QD
     Route: 048
     Dates: start: 20240709
  2. NUPLAZID [Suspect]
     Active Substance: PIMAVANSERIN TARTRATE
     Indication: Hallucination
  3. NUPLAZID [Suspect]
     Active Substance: PIMAVANSERIN TARTRATE
     Indication: Parkinson^s disease
  4. ALPRAZOLAM [Concomitant]
     Active Substance: ALPRAZOLAM
  5. ACETAMINOPHEN [Concomitant]
     Active Substance: ACETAMINOPHEN
  6. AMANTADINE [Concomitant]
     Active Substance: AMANTADINE
  7. VITAMIN C [Concomitant]
     Active Substance: ASCORBIC ACID
  8. CALCIUM\CHOLECALCIFEROL [Concomitant]
     Active Substance: CALCIUM\CHOLECALCIFEROL
  9. CARBIDOPA\LEVODOPA [Concomitant]
     Active Substance: CARBIDOPA\LEVODOPA
  10. BENADRYL [Concomitant]
     Active Substance: DIPHENHYDRAMINE HYDROCHLORIDE
  11. DONEPEZIL [Concomitant]
     Active Substance: DONEPEZIL
  12. ESZOPICLONE [Concomitant]
     Active Substance: ESZOPICLONE
  13. FLUVASTATIN [Concomitant]
     Active Substance: FLUVASTATIN SODIUM
  14. FUROSEMIDE [Concomitant]
     Active Substance: FUROSEMIDE
  15. GLIMEPIRIDE [Concomitant]
     Active Substance: GLIMEPIRIDE
  16. LANTUS [Concomitant]
     Active Substance: INSULIN GLARGINE
  17. INSULIN LISPRO [Concomitant]
     Active Substance: INSULIN LISPRO
  18. ISOSORBIDE MONONITRATE [Concomitant]
     Active Substance: ISOSORBIDE MONONITRATE
  19. MELATONIN [Concomitant]
     Active Substance: MELATONIN
  20. METFORMIN [Concomitant]
     Active Substance: METFORMIN HYDROCHLORIDE
  21. VITAMINS [Concomitant]
     Active Substance: VITAMINS
  22. NITROGLYCERIN [Concomitant]
     Active Substance: NITROGLYCERIN
  23. OMEGA-3 FATTY ACIDS [Concomitant]
     Active Substance: OMEGA-3 FATTY ACIDS
  24. OMEPRAZOLE [Concomitant]
     Active Substance: OMEPRAZOLE
  25. PRAMIPEXOLE [Concomitant]
     Active Substance: PRAMIPEXOLE\PRAMIPEXOLE DIHYDROCHLORIDE
  26. BRILINTA [Concomitant]
     Active Substance: TICAGRELOR
  27. METOPROLOL [Concomitant]
     Active Substance: METOPROLOL
  28. SPIRONOLACTONE [Concomitant]
     Active Substance: SPIRONOLACTONE
  29. MAGNESIUM [Concomitant]
     Active Substance: MAGNESIUM
  30. VITAMIN B12 [Concomitant]
     Active Substance: CYANOCOBALAMIN
  31. TYLENOL [Concomitant]
     Active Substance: ACETAMINOPHEN
  32. CALCIUM\CHOLECALCIFEROL [Concomitant]
     Active Substance: CALCIUM\CHOLECALCIFEROL
  33. LASIX [Concomitant]
     Active Substance: FUROSEMIDE
  34. XANAX [Concomitant]
     Active Substance: ALPRAZOLAM
  35. MAG CITRATE [Concomitant]

REACTIONS (3)
  - Fall [Unknown]
  - Rib fracture [Unknown]
  - Fall [Unknown]

NARRATIVE: CASE EVENT DATE: 20240701
